FAERS Safety Report 24567983 (Version 1)
Quarter: 2024Q4

REPORT INFORMATION
  Report Type: Spontaneous
  Country: US (occurrence: US)
  Receive Date: 20241031
  Receipt Date: 20241031
  Transmission Date: 20250114
  Serious: Yes (Other)
  Sender: SANDOZ
  Company Number: US-002147023-NVSC2024US209513

PATIENT
  Age: 25 Year
  Sex: Male

DRUGS (2)
  1. PREDNISOLONE ACETATE [Suspect]
     Active Substance: PREDNISOLONE ACETATE
     Indication: Visual impairment
     Dosage: NUMBER OF UNITS IN THE INTERVAL 1 DAY, DURATION OF DRUG ADMINISTRATION (NUMBER) 6 MONTHS , QID
     Route: 065
  2. MOXIFLOXACIN [Concomitant]
     Active Substance: MOXIFLOXACIN
     Indication: Eye pain
     Dosage: UNK UNK, QID
     Route: 065

REACTIONS (4)
  - Keratitis fungal [Recovering/Resolving]
  - Pain [Recovering/Resolving]
  - Ocular hyperaemia [Recovering/Resolving]
  - Drug ineffective for unapproved indication [Recovering/Resolving]
